FAERS Safety Report 9120222 (Version 5)
Quarter: 2016Q1

REPORT INFORMATION
  Report Type: Spontaneous
  Country: IE (occurrence: IE)
  Receive Date: 20130226
  Receipt Date: 20160203
  Transmission Date: 20160526
  Serious: Yes (Hospitalization, Other)
  Sender: FDA-Public Use
  Company Number: IE-BRISTOL-MYERS SQUIBB COMPANY-17396292

PATIENT
  Age: 56 Year
  Sex: Female

DRUGS (1)
  1. YERVOY [Suspect]
     Active Substance: IPILIMUMAB
     Indication: METASTATIC MALIGNANT MELANOMA
     Dosage: 216 MG  12FEB13,05MAR13  EXP DATE : AUG14
     Route: 042
     Dates: start: 20130120, end: 201304

REACTIONS (6)
  - Goitre [Unknown]
  - Pneumonitis [Recovered/Resolved]
  - Colitis [Recovering/Resolving]
  - Hypophysitis [Recovering/Resolving]
  - Fatigue [Recovering/Resolving]
  - Off label use [Unknown]

NARRATIVE: CASE EVENT DATE: 2013
